FAERS Safety Report 11245780 (Version 4)
Quarter: 2015Q3

REPORT INFORMATION
  Report Type: Report from Study
  Country: BE (occurrence: BE)
  Receive Date: 20150707
  Receipt Date: 20150928
  Transmission Date: 20151125
  Serious: Yes (Hospitalization)
  Sender: FDA-Public Use
  Company Number: BE-EXELIXIS-XL18415005526

PATIENT
  Age: 82 Year
  Sex: Male
  Weight: 65 kg

DRUGS (12)
  1. DAFALGAN [Concomitant]
     Active Substance: ACETAMINOPHEN
  2. LOPERAMIDE [Concomitant]
     Active Substance: LOPERAMIDE
  3. VALSARTAN. [Concomitant]
     Active Substance: VALSARTAN
  4. L THYROXINE [Concomitant]
     Active Substance: LEVOTHYROXINE SODIUM
  5. XL184 [Suspect]
     Active Substance: CABOZANTINIB
     Dosage: 40 MG, QD
     Route: 048
     Dates: start: 20150731
  6. COVERSYL [Concomitant]
     Active Substance: PERINDOPRIL
  7. LASIX [Concomitant]
     Active Substance: FUROSEMIDE
  8. DOXYCYCLINE. [Concomitant]
     Active Substance: DOXYCYCLINE
  9. CLEXANE [Concomitant]
     Active Substance: ENOXAPARIN SODIUM
  10. XL184 [Suspect]
     Active Substance: CABOZANTINIB
     Indication: RENAL CELL CARCINOMA
     Dosage: 60 MG, QD
     Route: 048
     Dates: start: 20140124
  11. XL184 [Suspect]
     Active Substance: CABOZANTINIB
     Dosage: 40 MG, QD
     Route: 048
     Dates: end: 20150628
  12. MAGNEPAMYL OPTI [Concomitant]

REACTIONS (2)
  - Nausea [Not Recovered/Not Resolved]
  - Presyncope [Not Recovered/Not Resolved]

NARRATIVE: CASE EVENT DATE: 20150629
